FAERS Safety Report 8509988-0 (Version None)
Quarter: 2012Q3

REPORT INFORMATION
  Report Type: 
  Country: None (occurrence: None)
  Receive Date: 20120713
  Receipt Date: 20120709
  Transmission Date: 20120928
  Serious: Yes (Life-Threatening, Hospitalization)
  Sender: FDA-Public Use
  Company Number: US-CELGENEUS-163-21880-12061165

PATIENT
  Sex: Female

DRUGS (3)
  1. REVLIMID [Suspect]
     Indication: MULTIPLE MYELOMA
     Dosage: 5 MILLIGRAM
     Route: 048
     Dates: start: 20120401
  2. REVLIMID [Suspect]
     Dosage: 5 MILLIGRAM
     Route: 048
     Dates: start: 20120507, end: 20120516
  3. DEXAMETHASONE [Concomitant]
     Dosage: 40 MILLIGRAM
     Route: 048
     Dates: start: 20120410

REACTIONS (2)
  - ANAEMIA [None]
  - MULTIPLE MYELOMA [None]
